FAERS Safety Report 22199063 (Version 1)
Quarter: 2023Q2

REPORT INFORMATION
  Report Type: Report from Study
  Country: FR (occurrence: FR)
  Receive Date: 20230411
  Receipt Date: 20230411
  Transmission Date: 20230721
  Serious: Yes (Hospitalization)
  Sender: FDA-Public Use
  Company Number: FR-SEATTLE GENETICS-2023SGN03551

PATIENT
  Age: 78 Year
  Sex: Male
  Weight: 79 kg

DRUGS (8)
  1. TISOTUMAB VEDOTIN [Suspect]
     Active Substance: TISOTUMAB VEDOTIN
     Indication: Non-small cell lung cancer
     Dosage: 1.7 MG/KG ON DAY 1 AND 15 OF EVERY 28 DAY CYCLE
     Route: 042
     Dates: start: 20230216
  2. TINZAPARIN [Concomitant]
     Active Substance: TINZAPARIN
     Indication: Factor V Leiden mutation
     Dosage: UNK
     Dates: start: 20230131
  3. AZITHROMYCIN [Concomitant]
     Active Substance: AZITHROMYCIN
     Indication: Blepharitis
     Dosage: UNK
     Route: 047
     Dates: start: 20230302
  4. AZITHROMYCIN [Concomitant]
     Active Substance: AZITHROMYCIN
     Indication: Blepharitis
     Dosage: UNK
     Route: 047
     Dates: start: 20230302
  5. HYALURONATE SODIUM [Concomitant]
     Active Substance: HYALURONATE SODIUM
     Indication: Blepharitis
     Dosage: UNK
     Route: 047
     Dates: start: 20230302
  6. METOCLOPRAMIDE [Concomitant]
     Active Substance: METOCLOPRAMIDE
     Indication: Decreased appetite
     Dosage: UNK
     Dates: start: 20230311
  7. LEVOTHYROXINE [Concomitant]
     Active Substance: LEVOTHYROXINE
     Indication: Hypothyroidism
     Dosage: UNK
     Dates: start: 20220921
  8. PREGABALIN [Concomitant]
     Active Substance: PREGABALIN
     Indication: Paraesthesia
     Dosage: UNK
     Dates: start: 2022

REACTIONS (1)
  - General physical health deterioration [Recovered/Resolved]

NARRATIVE: CASE EVENT DATE: 20230311
